FAERS Safety Report 5214318-6 (Version None)
Quarter: 2007Q1

REPORT INFORMATION
  Report Type: 
  Country: None (occurrence: None)
  Receive Date: 20070122
  Receipt Date: 20070108
  Transmission Date: 20070707
  Serious: No
  Sender: FDA-Public Use
  Company Number: US-JNJFOC-20060601737

PATIENT
  Sex: Female

DRUGS (2)
  1. ORTHO EVRA [Suspect]
     Indication: CONTRACEPTION
     Route: 062
  2. MACRODANTIN [Concomitant]

REACTIONS (2)
  - URINARY TRACT INFECTION [None]
  - VOMITING [None]
